FAERS Safety Report 4572505-4 (Version None)
Quarter: 2005Q1

REPORT INFORMATION
  Report Type: 
  Country: None (occurrence: None)
  Receive Date: 20050207
  Receipt Date: 20050131
  Transmission Date: 20050727
  Serious: Yes (Hospitalization, Other)
  Sender: FDA-Public Use
  Company Number: US-MERCK-0501USA04511

PATIENT
  Age: 59 Year
  Sex: Male
  Weight: 81 kg

DRUGS (6)
  1. VIOXX [Suspect]
     Route: 048
     Dates: start: 20020104, end: 20040901
  2. DIOVAN HCT [Concomitant]
     Route: 065
  3. LIPITOR [Concomitant]
     Route: 065
  4. TOPROL-XL [Concomitant]
     Route: 065
  5. ASPIRIN [Concomitant]
     Route: 065
  6. PRILOSEC [Concomitant]
     Route: 065

REACTIONS (1)
  - ATHEROSCLEROSIS [None]
